FAERS Safety Report 17254049 (Version 1)
Quarter: 2020Q1

REPORT INFORMATION
  Report Type: Spontaneous
  Country: NZ (occurrence: NZ)
  Receive Date: 20200109
  Receipt Date: 20200109
  Transmission Date: 20200409
  Serious: Yes (Other)
  Sender: FDA-Public Use
  Company Number: NZ-SA-2020SA000534

PATIENT
  Age: 70 Year
  Sex: Male

DRUGS (2)
  1. BCG FOR IMMUNOTHERAPY [Suspect]
     Active Substance: BACILLUS CALMETTE-GUERIN ANTIGEN, UNSPECIFIED SUBSTRAIN
     Dosage: UNK
     Route: 043
     Dates: start: 200811, end: 200901
  2. BCG FOR IMMUNOTHERAPY [Suspect]
     Active Substance: BACILLUS CALMETTE-GUERIN ANTIGEN, UNSPECIFIED SUBSTRAIN
     Indication: BLADDER CANCER
     Dosage: UNK
     Route: 043
     Dates: start: 200802, end: 200803

REACTIONS (5)
  - Osteolysis [Unknown]
  - Synovitis [Unknown]
  - Tuberculosis [Recovered/Resolved]
  - Subcutaneous haematoma [Unknown]
  - Mycobacterium tuberculosis complex test positive [Recovered/Resolved]
